FAERS Safety Report 12903735 (Version 6)
Quarter: 2018Q3

REPORT INFORMATION
  Report Type: Spontaneous
  Country: US (occurrence: US)
  Receive Date: 20161102
  Receipt Date: 20180820
  Transmission Date: 20181010
  Serious: Yes (Other)
  Sender: FDA-Public Use
  Company Number: US-BAYER-2016-209361

PATIENT
  Age: 31 Year
  Sex: Female
  Weight: 56.24 kg

DRUGS (1)
  1. MIRENA [Suspect]
     Active Substance: LEVONORGESTREL
     Indication: CONTRACEPTION
     Dosage: 20 MCG/24HR, CONT
     Route: 015
     Dates: start: 20141112

REACTIONS (3)
  - Device expulsion [None]
  - Pregnancy with contraceptive device [Unknown]
  - Drug ineffective [None]

NARRATIVE: CASE EVENT DATE: 20161003
